FAERS Safety Report 10559124 (Version 2)
Quarter: 2014Q4

REPORT INFORMATION
  Report Type: Report from Study
  Country: AR (occurrence: AR)
  Receive Date: 20141103
  Receipt Date: 20141127
  Transmission Date: 20150529
  Serious: Yes (Death, Hospitalization, Other)
  Sender: FDA-Public Use
  Company Number: AR-BRISTOL-MYERS SQUIBB COMPANY-21529284

PATIENT
  Age: 57 Year
  Sex: Female

DRUGS (1)
  1. IXEMPRA [Suspect]
     Active Substance: IXABEPILONE

REACTIONS (4)
  - Pain [Unknown]
  - Malignant neoplasm progression [Fatal]
  - Cerebrovascular accident [Unknown]
  - Nodule [Unknown]
